FAERS Safety Report 6237316-2 (Version None)
Quarter: 2009Q2

REPORT INFORMATION
  Report Type: 
  Country: None (occurrence: None)
  Receive Date: 20090619
  Receipt Date: 20090610
  Transmission Date: 20091009
  Serious: Yes (Other)
  Sender: FDA-Public Use
  Company Number: US-WYE-H09715209

PATIENT
  Age: 53 Year
  Sex: Female
  Weight: 124.4 kg

DRUGS (13)
  1. PRISTIQ [Suspect]
     Indication: DEPRESSION
     Route: 048
     Dates: start: 20090501, end: 20090501
  2. TRAZODONE HCL [Concomitant]
     Indication: DEPRESSION
     Dosage: UNKNOWN
  3. CLONAZEPAM [Concomitant]
     Indication: RESTLESS LEGS SYNDROME
  4. TIOTIXENE [Concomitant]
     Route: 048
  5. ZONISAMIDE [Concomitant]
     Indication: CONVULSION
  6. AMITIZA [Concomitant]
     Indication: CONSTIPATION
     Dosage: UNKNOWN DOSE 2 X DAY
  7. PROZAC [Concomitant]
     Route: 048
  8. CARTIA XT [Concomitant]
     Indication: HYPERTENSION
     Route: 048
  9. LISINOPRIL AND HYDROCHLOROTHIAZIDE [Concomitant]
     Indication: HYPERTENSION
     Dosage: 20/25 IN AM
     Route: 048
  10. OMEPRAZOLE [Concomitant]
     Indication: GASTRIC DISORDER
     Route: 048
  11. LACTULOSE [Concomitant]
     Indication: CONSTIPATION
     Route: 048
  12. ACETYLSALICYLIC ACID [Suspect]
     Route: 048
     Dates: end: 20090501
  13. LUVOX [Concomitant]

REACTIONS (8)
  - ABDOMINAL DISTENSION [None]
  - CEREBROVASCULAR ACCIDENT [None]
  - CONTUSION [None]
  - HAEMATOCHEZIA [None]
  - HEPATOMEGALY [None]
  - MUSCULOSKELETAL PAIN [None]
  - PRURITUS [None]
  - SKIN STRIAE [None]
